FAERS Safety Report 6898847-5 (Version None)
Quarter: 2010Q3

REPORT INFORMATION
  Report Type: 
  Country: None (occurrence: None)
  Receive Date: 20100802
  Receipt Date: 20071207
  Transmission Date: 20110219
  Serious: No
  Sender: FDA-Public Use
  Company Number: US-PFIZER INC-2007081888

PATIENT
  Sex: Male
  Weight: 86.2 kg

DRUGS (6)
  1. LYRICA [Suspect]
     Indication: BURNING SENSATION
     Dates: start: 20060101
  2. LYRICA [Suspect]
     Indication: PARAESTHESIA
  3. PROPRANOLOL [Concomitant]
  4. NORVASC [Concomitant]
  5. METFORMIN HCL [Concomitant]
  6. HYDROCHLOROTHIAZIDE [Concomitant]

REACTIONS (1)
  - DRUG INEFFECTIVE [None]
